FAERS Safety Report 4976993-0 (Version None)
Quarter: 2006Q2

REPORT INFORMATION
  Report Type: 
  Country: None (occurrence: None)
  Receive Date: 20060419
  Receipt Date: 20060407
  Transmission Date: 20061013
  Serious: Yes (Hospitalization)
  Sender: FDA-Public Use
  Company Number: FR-AVENTIS-200611337FR

PATIENT
  Age: 73 Year
  Sex: Male

DRUGS (9)
  1. AMARYL [Suspect]
     Indication: DIABETES MELLITUS
     Route: 048
     Dates: start: 20050701, end: 20060206
  2. ELOXATIN [Suspect]
     Indication: PANCREATIC CARCINOMA
     Route: 042
     Dates: start: 20060124, end: 20060124
  3. GEMZAR [Suspect]
     Indication: PANCREATIC CARCINOMA
     Route: 042
     Dates: start: 20060123, end: 20060123
  4. XANAX [Concomitant]
     Route: 048
  5. TENORDATE [Concomitant]
     Indication: ESSENTIAL HYPERTENSION
  6. CREON [Concomitant]
     Indication: PANCREATIC CARCINOMA
     Route: 048
  7. LOVENOX [Concomitant]
     Indication: VENOUS THROMBOSIS
     Route: 058
     Dates: start: 20060202
  8. SPASFON [Concomitant]
  9. ACETAMINOPHEN [Concomitant]

REACTIONS (2)
  - GUILLAIN-BARRE SYNDROME [None]
  - URINARY TRACT INFECTION [None]
